FAERS Safety Report 4668228-3 (Version None)
Quarter: 2005Q2

REPORT INFORMATION
  Report Type: 
  Country: None (occurrence: None)
  Receive Date: 20050523
  Receipt Date: 20050223
  Transmission Date: 20051028
  Serious: Yes (Other)
  Sender: FDA-Public Use
  Company Number: PHEH2005US02411

PATIENT
  Age: 84 Year
  Sex: Male

DRUGS (7)
  1. ZOMETA [Suspect]
     Indication: METASTASES TO BONE
     Dosage: 4 MG, QMO
     Route: 042
     Dates: start: 20020530
  2. ARTICAINE [Suspect]
  3. DECADRON                                /CAN/ [Concomitant]
  4. TAXOTERE [Concomitant]
  5. ET-743 [Concomitant]
  6. ARANESP [Concomitant]
  7. LUPRON [Concomitant]

REACTIONS (7)
  - BONE DISORDER [None]
  - ENDODONTIC PROCEDURE [None]
  - IMPAIRED HEALING [None]
  - LOCAL ANAESTHESIA [None]
  - OSTEONECROSIS [None]
  - TOOTH EXTRACTION [None]
  - WOUND DEBRIDEMENT [None]
